FAERS Safety Report 10416175 (Version 1)
Quarter: 2014Q3

REPORT INFORMATION
  Report Type: Spontaneous
  Country: US (occurrence: None)
  Receive Date: 20140827
  Receipt Date: 20140827
  Transmission Date: 20150326
  Serious: Yes (Other)
  Sender: FDA-Public Use
  Company Number: None

PATIENT
  Age: 49 Year
  Sex: Female

DRUGS (1)
  1. LEVAQUIN [Suspect]
     Active Substance: LEVOFLOXACIN

REACTIONS (4)
  - Tendon disorder [None]
  - Ligament injury [None]
  - Small fibre neuropathy [None]
  - Neuropathy peripheral [None]

NARRATIVE: CASE EVENT DATE: 20120704
